FAERS Safety Report 13545969 (Version 2)
Quarter: 2017Q2

REPORT INFORMATION
  Report Type: Report from Study
  Country: US (occurrence: US)
  Receive Date: 20170515
  Receipt Date: 20170518
  Transmission Date: 20170830
  Serious: Yes (Hospitalization, Other)
  Sender: FDA-Public Use
  Company Number: US-GILEAD-2017-0272595

PATIENT
  Age: 76 Year
  Sex: Female

DRUGS (1)
  1. AMBRISENTAN [Suspect]
     Active Substance: AMBRISENTAN
     Indication: PRODUCT USED FOR UNKNOWN INDICATION
     Dosage: 10 MG, UNK
     Route: 065
     Dates: start: 20111130

REACTIONS (3)
  - Cough [Not Recovered/Not Resolved]
  - Malaise [Not Recovered/Not Resolved]
  - Pulmonary hypertension [Unknown]
